FAERS Safety Report 20128145 (Version 3)
Quarter: 2022Q1

REPORT INFORMATION
  Report Type: Report from Study
  Country: CO (occurrence: CO)
  Receive Date: 20211129
  Receipt Date: 20220303
  Transmission Date: 20220423
  Serious: Yes (Other)
  Sender: FDA-Public Use
  Company Number: CO-ABBVIE-21K-036-4037990-00

PATIENT
  Sex: Male
  Weight: 76 kg

DRUGS (9)
  1. HUMIRA [Suspect]
     Active Substance: ADALIMUMAB
     Indication: Hidradenitis
     Route: 058
     Dates: start: 20180906
  2. HUMIRA [Suspect]
     Active Substance: ADALIMUMAB
     Route: 058
  3. HUMIRA [Suspect]
     Active Substance: ADALIMUMAB
     Route: 058
  4. COVID-19 VACCINE NOS [Suspect]
     Active Substance: COVID-19 VACCINE NOS
     Indication: COVID-19 immunisation
     Route: 030
     Dates: start: 20210630, end: 20210630
  5. COVID-19 VACCINE NOS [Suspect]
     Active Substance: COVID-19 VACCINE NOS
     Route: 030
     Dates: start: 20210723, end: 20210723
  6. CROMUS [Concomitant]
     Indication: Dermatitis
     Route: 061
  7. CROMUS [Concomitant]
     Indication: Hypersensitivity
  8. METHOTREXATE [Concomitant]
     Active Substance: METHOTREXATE
     Indication: Product used for unknown indication
  9. FOLIC ACID [Concomitant]
     Active Substance: FOLIC ACID
     Indication: Product used for unknown indication

REACTIONS (24)
  - Loss of consciousness [Recovered/Resolved]
  - Seizure [Unknown]
  - Adverse food reaction [Not Recovered/Not Resolved]
  - Dandruff [Not Recovered/Not Resolved]
  - Skin weeping [Not Recovered/Not Resolved]
  - Ear disorder [Not Recovered/Not Resolved]
  - Ear swelling [Not Recovered/Not Resolved]
  - Ear injury [Not Recovered/Not Resolved]
  - Musculoskeletal disorder [Not Recovered/Not Resolved]
  - Pallor [Unknown]
  - Musculoskeletal disorder [Unknown]
  - Scab [Recovering/Resolving]
  - Malaise [Unknown]
  - Papule [Not Recovered/Not Resolved]
  - Skin discolouration [Unknown]
  - Skin exfoliation [Not Recovered/Not Resolved]
  - Psoriasis [Recovering/Resolving]
  - Subcutaneous abscess [Not Recovered/Not Resolved]
  - Neck pain [Unknown]
  - Hypersensitivity [Not Recovered/Not Resolved]
  - Rash [Not Recovered/Not Resolved]
  - Tremor [Unknown]
  - Oedema peripheral [Recovering/Resolving]
  - Therapeutic product effect incomplete [Recovering/Resolving]

NARRATIVE: CASE EVENT DATE: 20210101
